FAERS Safety Report 6497579-5 (Version None)
Quarter: 2009Q4

REPORT INFORMATION
  Report Type: 
  Country: None (occurrence: None)
  Receive Date: 20091215
  Receipt Date: 20091204
  Transmission Date: 20100525
  Serious: No
  Sender: FDA-Public Use
  Company Number: US-JNJFOC-20091202216

PATIENT
  Sex: Female
  Weight: 45.36 kg

DRUGS (2)
  1. SANDOZ FENTANYL TRANSDERMAL SYSTEM [Suspect]
     Indication: BACK PAIN
     Route: 062
  2. MULTIPLE OTHER MEDICATIONS [Concomitant]
     Route: 065

REACTIONS (2)
  - BACK PAIN [None]
  - TREATMENT NONCOMPLIANCE [None]
